FAERS Safety Report 7572339-2 (Version None)
Quarter: 2011Q2

REPORT INFORMATION
  Report Type: 
  Country: None (occurrence: None)
  Receive Date: 20110624
  Receipt Date: 20110617
  Transmission Date: 20111010
  Serious: Yes (Other)
  Sender: FDA-Public Use
  Company Number: PHHO2011BR10525

PATIENT
  Age: 49 Year
  Sex: Male
  Weight: 79.3 kg

DRUGS (8)
  1. TACROLIMUS [Suspect]
     Indication: RENAL TRANSPLANT
     Dosage: 8 MG, BID
     Route: 048
     Dates: start: 20110122
  2. PREDNISONE [Suspect]
     Indication: RENAL TRANSPLANT
     Dosage: 30 MG, QD
     Route: 048
     Dates: start: 20110122
  3. ALBENDAZOLE [Concomitant]
  4. RANITIDINE [Concomitant]
  5. CEFAZOLIN [Concomitant]
  6. SULFAMETHOXAZOLE AND TRIMETHOPRIM [Concomitant]
  7. MYFORTIC [Suspect]
     Indication: RENAL TRANSPLANT
     Dosage: 720 MG, BID
     Route: 048
     Dates: start: 20110122
  8. AMLODIPINE [Concomitant]

REACTIONS (2)
  - TUBULOINTERSTITIAL NEPHRITIS [None]
  - DRUG INEFFECTIVE [None]
